FAERS Safety Report 9233087 (Version 2)
Quarter: 2013Q2

REPORT INFORMATION
  Report Type: Report from Study
  Country: BR (occurrence: BR)
  Receive Date: 20130416
  Receipt Date: 20130515
  Transmission Date: 20140414
  Serious: Yes (Hospitalization, Other)
  Sender: FDA-Public Use
  Company Number: PHHY2013BR035954

PATIENT
  Sex: Female

DRUGS (5)
  1. GALVUS [Suspect]
  2. DIOVAN [Suspect]
     Dosage: UNK UKN, UNK
  3. GALVUS MET [Suspect]
     Indication: DIABETES MELLITUS
     Dosage: 2 DF(850/50 MG), DAILY
     Route: 048
  4. DIOVAN HCT [Suspect]
     Indication: HYPERTENSION
     Dosage: 1 DF(160/25 MG), DAILY
     Route: 048
  5. VERAPAMIL HYDROCHLOIRDE [Concomitant]
     Dosage: 80 MG, DAILY
     Dates: start: 20130412

REACTIONS (2)
  - Pulmonary thrombosis [Recovered/Resolved]
  - Cardiomegaly [Recovering/Resolving]
